FAERS Safety Report 6673122-2 (Version None)
Quarter: 2010Q2

REPORT INFORMATION
  Report Type: 
  Country: None (occurrence: None)
  Receive Date: 20100408
  Receipt Date: 20100330
  Transmission Date: 20101027
  Serious: Yes (Hospitalization)
  Sender: FDA-Public Use
  Company Number: US-PFIZER INC-2007004623

PATIENT
  Sex: Female
  Weight: 74.84 kg

DRUGS (34)
  1. IBUPROFEN [Suspect]
     Indication: OSTEOARTHRITIS
     Dosage: UNK
     Route: 048
     Dates: start: 20061220, end: 20070319
  2. NAPROXEN [Suspect]
     Indication: OSTEOARTHRITIS
     Dosage: UNK
     Route: 048
     Dates: start: 20061220, end: 20070319
  3. BLINDED *NO SUBJECT DRUG [Suspect]
     Indication: OSTEOARTHRITIS
     Dosage: UNK
     Route: 048
     Dates: start: 20061220, end: 20070319
  4. BLINDED *PLACEBO [Suspect]
     Indication: OSTEOARTHRITIS
     Dosage: UNK
     Route: 048
     Dates: start: 20061220, end: 20070319
  5. BLINDED CELECOXIB [Suspect]
     Indication: OSTEOARTHRITIS
     Dosage: UNK
     Route: 048
     Dates: start: 20061220, end: 20070319
  6. IBUPROFEN [Suspect]
     Dosage: UNK
     Route: 048
     Dates: start: 20061220, end: 20070319
  7. NAPROXEN [Suspect]
     Dosage: UNK
     Route: 048
     Dates: start: 20061220, end: 20070319
  8. IBUPROFEN [Suspect]
     Indication: RHEUMATOID ARTHRITIS
  9. NAPROXEN [Suspect]
     Indication: RHEUMATOID ARTHRITIS
  10. BLINDED *NO SUBJECT DRUG [Suspect]
     Indication: RHEUMATOID ARTHRITIS
  11. BLINDED *PLACEBO [Suspect]
     Indication: RHEUMATOID ARTHRITIS
  12. BLINDED CELECOXIB [Suspect]
     Indication: RHEUMATOID ARTHRITIS
  13. IBUPROFEN [Suspect]
  14. NAPROXEN [Suspect]
  15. NEXIUM [Concomitant]
     Indication: PROPHYLAXIS
     Dosage: 20 OR 40 MG/KG DAILY
     Route: 048
  16. ULTRACET [Concomitant]
     Dosage: HS
     Route: 048
     Dates: start: 20020724
  17. ATENOLOL [Concomitant]
     Dosage: 15G/25G,AM/HS
     Route: 048
     Dates: start: 20000802
  18. MULTI-VITAMINS [Concomitant]
     Route: 048
     Dates: start: 20010813
  19. VITACAL [Concomitant]
     Route: 048
     Dates: start: 20060317
  20. LECITHIN [Concomitant]
     Route: 048
     Dates: start: 20020107
  21. ROSUVASTATIN [Concomitant]
     Route: 048
     Dates: start: 20060104
  22. FLAXSEED OIL [Concomitant]
     Route: 048
     Dates: start: 20051003
  23. GLUCOTROL [Concomitant]
     Route: 048
     Dates: start: 20060627
  24. DIPHENHYDRAMINE HYDROCHLORIDE [Concomitant]
     Route: 048
     Dates: start: 20020107
  25. CYCLOBENZAPRINE [Concomitant]
     Dosage: HS
     Route: 048
     Dates: start: 20060627
  26. LYSINE [Concomitant]
     Route: 048
     Dates: start: 20020107
  27. LEVOTHYROXINE SODIUM [Concomitant]
     Route: 048
     Dates: start: 20050310
  28. EZETIMIBE [Concomitant]
     Route: 048
     Dates: start: 20050310
  29. DICYCLOMINE [Concomitant]
     Route: 048
     Dates: start: 20061116
  30. LANSOPRAZOLE [Concomitant]
     Route: 048
     Dates: start: 20070113, end: 20070117
  31. ASPIRIN [Concomitant]
     Dosage: 1 TAB
     Route: 048
     Dates: start: 20070113
  32. LISINOPRIL [Concomitant]
     Route: 048
     Dates: start: 20070113
  33. CALCIUM WITH VITAMIN D [Concomitant]
     Route: 048
     Dates: start: 20060307
  34. PRAZOSIN [Concomitant]

REACTIONS (5)
  - AORTIC VALVE SCLEROSIS [None]
  - CARDIOMEGALY [None]
  - CORONARY ARTERY OCCLUSION [None]
  - HEART RATE IRREGULAR [None]
  - MITRAL VALVE CALCIFICATION [None]
